FAERS Safety Report 15946890 (Version 1)
Quarter: 2019Q1

REPORT INFORMATION
  Report Type: Spontaneous
  Country: US (occurrence: US)
  Receive Date: 20190212
  Receipt Date: 20190212
  Transmission Date: 20190417
  Serious: Yes (Disabling)
  Sender: FDA-Public Use
  Company Number: None

PATIENT
  Age: 54 Year
  Sex: Female
  Weight: 72 kg

DRUGS (1)
  1. OSELTAMIVIR - I THREW THE PACKAGE AWAY [Suspect]
     Active Substance: OSELTAMIVIR
     Indication: INFLUENZA
     Dosage: ?          QUANTITY:10 CAPSULE(S);?
     Route: 048
     Dates: start: 20190207, end: 20190209

REACTIONS (9)
  - Pain [None]
  - Hypoaesthesia [None]
  - Dizziness [None]
  - Abdominal discomfort [None]
  - Condition aggravated [None]
  - Peripheral swelling [None]
  - Paraesthesia [None]
  - Influenza [None]
  - Hypokinesia [None]

NARRATIVE: CASE EVENT DATE: 20190209
